FAERS Safety Report 7926973-8 (Version None)
Quarter: 2011Q4

REPORT INFORMATION
  Report Type: 
  Country: None (occurrence: None)
  Receive Date: 20111118
  Receipt Date: 20111111
  Transmission Date: 20120403
  Serious: Yes (Hospitalization)
  Sender: FDA-Public Use
  Company Number: NL-B.I. PHARMACEUTICALS,INC./RIDGEFIELD-2011-NL-00356NL

PATIENT
  Sex: Female

DRUGS (1)
  1. ATROVENT [Suspect]

REACTIONS (1)
  - NEOPLASM [None]
